FAERS Safety Report 12741310 (Version 2)
Quarter: 2017Q3

REPORT INFORMATION
  Report Type: Report from Study
  Country: US (occurrence: US)
  Receive Date: 20160914
  Receipt Date: 20170810
  Transmission Date: 20171127
  Serious: Yes (Death, Life-Threatening, Other)
  Sender: FDA-Public Use
  Company Number: US-ROCHE-795124

PATIENT
  Age: 72 Year
  Sex: Male
  Weight: 100.9 kg

DRUGS (69)
  1. BEVACIZUMAB. [Suspect]
     Active Substance: BEVACIZUMAB
     Indication: PROSTATE CANCER
     Dosage: 15MG/KG IV OVER 60 MINUTES ON DAY 1.?LAST DOSE PRIOR TO SERIOUS ADVERSE EVENT: 02/MAY/2011?COURSE:1
     Route: 042
  2. BEVACIZUMAB. [Suspect]
     Active Substance: BEVACIZUMAB
     Dosage: COURSE 2
     Route: 042
  3. BEVACIZUMAB. [Suspect]
     Active Substance: BEVACIZUMAB
     Dosage: COURSE 9
     Route: 042
  4. BEVACIZUMAB. [Suspect]
     Active Substance: BEVACIZUMAB
     Dosage: COURSE 11
     Route: 042
  5. LENALIDOMIDE [Suspect]
     Active Substance: LENALIDOMIDE
     Dosage: COURSE 12
     Route: 048
  6. LENALIDOMIDE [Suspect]
     Active Substance: LENALIDOMIDE
     Dosage: COURSE 19
     Route: 048
  7. DOCETAXEL. [Suspect]
     Active Substance: DOCETAXEL
     Dosage: COURSE 2
     Route: 042
     Dates: start: 20101004
  8. PREDNISONE. [Suspect]
     Active Substance: PREDNISONE
     Dosage: COURSE 10
     Route: 048
     Dates: start: 20110321
  9. BEVACIZUMAB. [Suspect]
     Active Substance: BEVACIZUMAB
     Dosage: COURSE 8
     Route: 042
  10. LENALIDOMIDE [Suspect]
     Active Substance: LENALIDOMIDE
     Dosage: COURSE 6
     Route: 048
  11. LENALIDOMIDE [Suspect]
     Active Substance: LENALIDOMIDE
     Dosage: COURSE 10
     Route: 048
  12. LENALIDOMIDE [Suspect]
     Active Substance: LENALIDOMIDE
     Dosage: COURSE 14
     Route: 048
  13. DOCETAXEL. [Suspect]
     Active Substance: DOCETAXEL
     Dosage: COURSE 5
     Route: 042
     Dates: start: 20101206
  14. DOCETAXEL. [Suspect]
     Active Substance: DOCETAXEL
     Dosage: COURSE 12
     Route: 042
     Dates: start: 20110502
  15. DOCETAXEL. [Suspect]
     Active Substance: DOCETAXEL
     Dosage: COURSE 18
     Route: 042
     Dates: start: 20110906
  16. DOCETAXEL. [Suspect]
     Active Substance: DOCETAXEL
     Dosage: COUSE 20
     Route: 042
     Dates: start: 20111018
  17. PREDNISONE. [Suspect]
     Active Substance: PREDNISONE
     Dosage: COURSE 5
     Route: 048
     Dates: start: 20101206
  18. PREDNISONE. [Suspect]
     Active Substance: PREDNISONE
     Dosage: COURSE 15
     Route: 048
     Dates: start: 20110705
  19. BEVACIZUMAB. [Suspect]
     Active Substance: BEVACIZUMAB
     Dosage: COURSE 5
     Route: 042
  20. BEVACIZUMAB. [Suspect]
     Active Substance: BEVACIZUMAB
     Dosage: COURSE 17
     Route: 042
  21. LENALIDOMIDE [Suspect]
     Active Substance: LENALIDOMIDE
     Dosage: COURSE 5
     Route: 048
  22. LENALIDOMIDE [Suspect]
     Active Substance: LENALIDOMIDE
     Dosage: COURSE 17
     Route: 048
  23. LENALIDOMIDE [Suspect]
     Active Substance: LENALIDOMIDE
     Dosage: COURSE 18
     Route: 048
  24. LENALIDOMIDE [Suspect]
     Active Substance: LENALIDOMIDE
     Dosage: COURSE 20
     Route: 048
  25. DOCETAXEL. [Suspect]
     Active Substance: DOCETAXEL
     Dosage: COURSE 10
     Route: 042
     Dates: start: 20110321
  26. DOCETAXEL. [Suspect]
     Active Substance: DOCETAXEL
     Dosage: COURSE 11
     Route: 042
     Dates: start: 20110412
  27. DOCETAXEL. [Suspect]
     Active Substance: DOCETAXEL
     Dosage: COURSE 19
     Route: 042
     Dates: start: 20110927
  28. PREDNISONE. [Suspect]
     Active Substance: PREDNISONE
     Dosage: COURSE 2
     Route: 048
     Dates: start: 20101004
  29. BEVACIZUMAB. [Suspect]
     Active Substance: BEVACIZUMAB
     Dosage: COURSE 16
     Route: 042
  30. BEVACIZUMAB. [Suspect]
     Active Substance: BEVACIZUMAB
     Dosage: COURSE 19
     Route: 042
  31. BEVACIZUMAB. [Suspect]
     Active Substance: BEVACIZUMAB
     Dosage: COURSE 20
     Route: 042
  32. LENALIDOMIDE [Suspect]
     Active Substance: LENALIDOMIDE
     Dosage: COUSE 2
     Route: 048
  33. LENALIDOMIDE [Suspect]
     Active Substance: LENALIDOMIDE
     Dosage: COURSE 11
     Route: 048
  34. DOCETAXEL. [Suspect]
     Active Substance: DOCETAXEL
     Dosage: COUSE 3
     Route: 042
     Dates: start: 20101025
  35. PREDNISONE. [Suspect]
     Active Substance: PREDNISONE
     Dosage: COURSE 11
     Route: 048
     Dates: start: 20110412
  36. BEVACIZUMAB. [Suspect]
     Active Substance: BEVACIZUMAB
     Dosage: COURSR 3
     Route: 042
  37. BEVACIZUMAB. [Suspect]
     Active Substance: BEVACIZUMAB
     Dosage: COURSE 6
     Route: 042
  38. LENALIDOMIDE [Suspect]
     Active Substance: LENALIDOMIDE
     Dosage: COURSE 3
     Route: 048
  39. DOCETAXEL. [Suspect]
     Active Substance: DOCETAXEL
     Dosage: COURSE 16
     Route: 042
     Dates: start: 20110725
  40. PREDNISONE. [Suspect]
     Active Substance: PREDNISONE
     Indication: PROSTATE CANCER
     Dosage: COURSE:1
     Route: 048
     Dates: start: 20100914
  41. PREDNISONE. [Suspect]
     Active Substance: PREDNISONE
     Dosage: COURSE 3
     Route: 048
  42. PREDNISONE. [Suspect]
     Active Substance: PREDNISONE
     Dosage: COURSE 17
     Route: 048
     Dates: start: 20110815
  43. LOVENOX [Concomitant]
     Active Substance: ENOXAPARIN SODIUM
  44. BEVACIZUMAB. [Suspect]
     Active Substance: BEVACIZUMAB
     Dosage: COURSE 10
     Route: 042
  45. BEVACIZUMAB. [Suspect]
     Active Substance: BEVACIZUMAB
     Dosage: COURSE 14
     Route: 042
  46. BEVACIZUMAB. [Suspect]
     Active Substance: BEVACIZUMAB
     Dosage: COURSE 15
     Route: 042
  47. LENALIDOMIDE [Suspect]
     Active Substance: LENALIDOMIDE
     Dosage: COURSE 8
     Route: 048
  48. LENALIDOMIDE [Suspect]
     Active Substance: LENALIDOMIDE
     Dosage: COURSE 16
     Route: 048
  49. DOCETAXEL. [Suspect]
     Active Substance: DOCETAXEL
     Indication: PROSTATE CANCER
     Dosage: COURSE1
     Route: 042
     Dates: start: 20100914
  50. DOCETAXEL. [Suspect]
     Active Substance: DOCETAXEL
     Dosage: COURSE 9
     Route: 042
     Dates: start: 20110228
  51. PREDNISONE. [Suspect]
     Active Substance: PREDNISONE
     Dosage: COURSE 8
     Route: 048
  52. PREDNISONE. [Suspect]
     Active Substance: PREDNISONE
     Dosage: COURSE 12
     Route: 048
     Dates: start: 20110502
  53. BEVACIZUMAB. [Suspect]
     Active Substance: BEVACIZUMAB
     Dosage: COURSE 12
     Route: 042
  54. BEVACIZUMAB. [Suspect]
     Active Substance: BEVACIZUMAB
     Dosage: COURSE 18
     Route: 042
  55. LENALIDOMIDE [Suspect]
     Active Substance: LENALIDOMIDE
     Dosage: COURSE 9
     Route: 048
  56. LENALIDOMIDE [Suspect]
     Active Substance: LENALIDOMIDE
     Dosage: COURSE 15
     Route: 048
  57. DOCETAXEL. [Suspect]
     Active Substance: DOCETAXEL
     Dosage: COURSE 6
     Route: 042
     Dates: start: 20101227
  58. DOCETAXEL. [Suspect]
     Active Substance: DOCETAXEL
     Dosage: COURSE 8
     Route: 042
     Dates: start: 20110207
  59. DOCETAXEL. [Suspect]
     Active Substance: DOCETAXEL
     Dosage: COURSE 14
     Route: 042
     Dates: start: 20110613
  60. DOCETAXEL. [Suspect]
     Active Substance: DOCETAXEL
     Dosage: COURSE 17
     Route: 042
     Dates: start: 20110815
  61. PREDNISONE. [Suspect]
     Active Substance: PREDNISONE
     Dosage: COURSE 6
     Route: 048
     Dates: start: 20101227
  62. PREDNISONE. [Suspect]
     Active Substance: PREDNISONE
     Dosage: COURSE 14
     Route: 048
     Dates: start: 20110613
  63. PREDNISONE. [Suspect]
     Active Substance: PREDNISONE
     Dosage: COURSE 18
     Route: 048
     Dates: start: 20110906
  64. PREDNISONE. [Suspect]
     Active Substance: PREDNISONE
     Dosage: COURSE 19
     Route: 048
     Dates: start: 20110927
  65. LENALIDOMIDE [Suspect]
     Active Substance: LENALIDOMIDE
     Indication: PROSTATE CANCER
     Dosage: 25MG PO QD ON DAYS 1-14?LAST DOSE PRIOR TO SERIOUS ADVERSE EVENT: 10/MAY/2011?COURSE 1
     Route: 048
  66. DOCETAXEL. [Suspect]
     Active Substance: DOCETAXEL
     Dosage: COURSE 15
     Route: 042
     Dates: start: 20110705
  67. PREDNISONE. [Suspect]
     Active Substance: PREDNISONE
     Dosage: COURSE 9
     Route: 048
     Dates: start: 20110228
  68. PREDNISONE. [Suspect]
     Active Substance: PREDNISONE
     Dosage: COURSE 16
     Route: 048
     Dates: start: 20110725
  69. PREDNISONE. [Suspect]
     Active Substance: PREDNISONE
     Dosage: COURSE 20
     Route: 048
     Dates: start: 20111018

REACTIONS (5)
  - Anaemia [Unknown]
  - Disease progression [Fatal]
  - Neutrophil count decreased [Unknown]
  - Platelet count decreased [Unknown]
  - Hypophosphataemia [Unknown]

NARRATIVE: CASE EVENT DATE: 20120228
